FAERS Safety Report 12443691 (Version 2)
Quarter: 2016Q2

REPORT INFORMATION
  Report Type: Spontaneous
  Country: US (occurrence: US)
  Receive Date: 20160607
  Receipt Date: 20160614
  Transmission Date: 20160815
  Serious: No
  Sender: FDA-Public Use
  Company Number: US-PFIZER INC-2016280016

PATIENT
  Age: 52 Year
  Sex: Female
  Weight: 63.5 kg

DRUGS (7)
  1. GABAPENTIN. [Suspect]
     Active Substance: GABAPENTIN
     Indication: NEURALGIA
     Dosage: 300 MG, 3X/DAY
     Dates: start: 20160317, end: 20160601
  2. ESTRADIOL. [Concomitant]
     Active Substance: ESTRADIOL
     Indication: HORMONE REPLACEMENT THERAPY
     Dosage: 1 UG, 1X/DAY
  3. GABAPENTIN. [Suspect]
     Active Substance: GABAPENTIN
     Dosage: 400 MG, 3X/DAY
  4. VICODIN [Concomitant]
     Active Substance: ACETAMINOPHEN\HYDROCODONE BITARTRATE
     Indication: NEURALGIA
     Dosage: UNK, AS NEEDED (7.5MG HYDROCODONE BITARTRATE, 325 MG PARACETAMOL, EVERY 4 HOURS)
     Route: 048
     Dates: start: 2014
  5. GABAPENTIN. [Suspect]
     Active Substance: GABAPENTIN
     Indication: NEURALGIA
     Dosage: 200 MG, 3X/DAY (FOR A WEEK)
  6. MELOXICAM. [Concomitant]
     Active Substance: MELOXICAM
     Indication: NERVE INJURY
     Dosage: 15 MG, 1X/DAY
     Route: 048
     Dates: start: 2015
  7. GABAPENTIN. [Suspect]
     Active Substance: GABAPENTIN
     Indication: NERVE INJURY
     Dosage: 100 MG, 3X/DAY (FOR A WEEK)
     Dates: start: 201603

REACTIONS (7)
  - Condition aggravated [Unknown]
  - Product use issue [Unknown]
  - Rash [Recovering/Resolving]
  - Scratch [Unknown]
  - Pain [Unknown]
  - Burning sensation [Unknown]
  - Urticaria [Unknown]

NARRATIVE: CASE EVENT DATE: 201603
